FAERS Safety Report 7120570-2 (Version None)
Quarter: 2010Q4

REPORT INFORMATION
  Report Type: 
  Country: None (occurrence: None)
  Receive Date: 20101119
  Receipt Date: 20101119
  Transmission Date: 20110411
  Serious: Yes (Other)
  Sender: FDA-Public Use
  Company Number: None

PATIENT
  Sex: Male

DRUGS (3)
  1. LEVOTHYROXINE SODIUM [Suspect]
     Indication: HYPOTHYROIDISM
     Dosage: LEVOTHYROXINE 1 OD PO
     Route: 048
  2. LEVOXYL [Suspect]
     Indication: PARATHYROIDECTOMY
     Dosage: LEVOXYL 1 OD PO
     Route: 048
  3. LEVOXYL [Suspect]
     Indication: THYROIDECTOMY
     Dosage: LEVOXYL 1 OD PO
     Route: 048

REACTIONS (5)
  - AFFECT LABILITY [None]
  - DRUG INEFFECTIVE [None]
  - MENTAL DISORDER [None]
  - MOOD SWINGS [None]
  - PRODUCT SUBSTITUTION ISSUE [None]
